APPROVED DRUG PRODUCT: SORIATANE
Active Ingredient: ACITRETIN
Strength: 22.5MG **Federal Register determination that product was not discontinued or withdrawn for safety or effectiveness reasons**
Dosage Form/Route: CAPSULE;ORAL
Application: N019821 | Product #004
Applicant: STIEFEL LABORATORIES INC
Approved: Aug 6, 2009 | RLD: Yes | RS: No | Type: DISCN